FAERS Safety Report 16761348 (Version 1)
Quarter: 2019Q3

REPORT INFORMATION
  Report Type: Spontaneous
  Country: IT (occurrence: IT)
  Receive Date: 20190830
  Receipt Date: 20190830
  Transmission Date: 20191005
  Serious: Yes (Hospitalization, Other)
  Sender: FDA-Public Use
  Company Number: IT-BRISTOL-MYERS SQUIBB COMPANY-BMS-2019-081889

PATIENT
  Age: 53 Year
  Sex: Male

DRUGS (3)
  1. INDINAVIR [Suspect]
     Active Substance: INDINAVIR
     Indication: HIV INFECTION
     Dosage: UNK
     Route: 065
  2. LAMIVUDINE. [Suspect]
     Active Substance: LAMIVUDINE
     Indication: HIV INFECTION
     Dosage: UNK
     Route: 065
  3. ZERIT [Suspect]
     Active Substance: STAVUDINE
     Indication: HIV INFECTION
     Dosage: UNK
     Route: 065

REACTIONS (11)
  - Lipohypertrophy [Unknown]
  - Hypertriglyceridaemia [Unknown]
  - Dysphonia [Unknown]
  - Lipodystrophy acquired [Unknown]
  - Thyroid mass [Unknown]
  - Papillary thyroid cancer [Unknown]
  - Fat tissue decreased [Unknown]
  - Hyperthyroidism [Unknown]
  - Tracheal stenosis [Unknown]
  - Goitre [Unknown]
  - Lipid metabolism disorder [Unknown]
